FAERS Safety Report 5893262-5 (Version None)
Quarter: 2008Q3

REPORT INFORMATION
  Report Type: 
  Country: None (occurrence: None)
  Receive Date: 20080922
  Receipt Date: 20080922
  Transmission Date: 20090109
  Serious: Yes (Hospitalization)
  Sender: FDA-Public Use
  Company Number: None

PATIENT
  Age: 83 Year
  Sex: Male
  Weight: 88.77 kg

DRUGS (2)
  1. MOXIFLOXACIN HCL [Suspect]
     Indication: CHRONIC OBSTRUCTIVE PULMONARY DISEASE
     Dosage: 400 MG ONCE IV
     Route: 042
     Dates: start: 20080806, end: 20080806
  2. MOXIFLOXACIN HCL [Suspect]
     Indication: INFECTION
     Dosage: 400 MG ONCE IV
     Route: 042
     Dates: start: 20080806, end: 20080806

REACTIONS (2)
  - INFUSION SITE ERYTHEMA [None]
  - RASH [None]
